FAERS Safety Report 4957037-3 (Version None)
Quarter: 2006Q1

REPORT INFORMATION
  Report Type: 
  Country: None (occurrence: None)
  Receive Date: 20060323
  Receipt Date: 20060306
  Transmission Date: 20060701
  Serious: Yes (Hospitalization, Disabling)
  Sender: FDA-Public Use
  Company Number: 412370

PATIENT
  Age: 20 Year
  Sex: Female
  Weight: 68 kg

DRUGS (2)
  1. ACCUTANE [Suspect]
     Indication: ACNE
     Dosage: ORAL
     Route: 048
     Dates: start: 19990715, end: 19990915
  2. IBUPROFEN [Concomitant]

REACTIONS (78)
  - ABDOMINAL DISTENSION [None]
  - ANAEMIA [None]
  - ANAL FISSURE [None]
  - ANAL SKIN TAGS [None]
  - ANHEDONIA [None]
  - ANXIETY [None]
  - ASTHENIA [None]
  - AUTOANTIBODY POSITIVE [None]
  - BACK PAIN [None]
  - BRONCHITIS [None]
  - CERVICAL DYSPLASIA [None]
  - CHEST PAIN [None]
  - COLITIS [None]
  - COLITIS ULCERATIVE [None]
  - COOMBS DIRECT TEST POSITIVE [None]
  - COUGH [None]
  - CULTURE STOOL POSITIVE [None]
  - CUSHINGOID [None]
  - DECREASED APPETITE [None]
  - DEHYDRATION [None]
  - DIARRHOEA [None]
  - DISCOMFORT [None]
  - DIZZINESS [None]
  - DRY THROAT [None]
  - FAECALITH [None]
  - FAECES DISCOLOURED [None]
  - FATIGUE [None]
  - FLATULENCE [None]
  - FREQUENT BOWEL MOVEMENTS [None]
  - GASTROINTESTINAL DISORDER [None]
  - HAEMATOCHEZIA [None]
  - HAEMATOCRIT DECREASED [None]
  - HAEMOGLOBIN DECREASED [None]
  - HAEMORRHOIDS [None]
  - HEADACHE [None]
  - HEPATIC ENZYME INCREASED [None]
  - INFLAMMATORY BOWEL DISEASE [None]
  - INJURY [None]
  - INTESTINAL HAEMORRHAGE [None]
  - IRON DEFICIENCY [None]
  - IRON DEFICIENCY ANAEMIA [None]
  - IRRITABLE BOWEL SYNDROME [None]
  - MALAISE [None]
  - MICROCYTIC ANAEMIA [None]
  - MULTI-ORGAN DISORDER [None]
  - MUSCLE INJURY [None]
  - MUSCLE SPASMS [None]
  - MUSCULOSKELETAL CHEST PAIN [None]
  - NASAL CONGESTION [None]
  - NASOPHARYNGITIS [None]
  - NAUSEA [None]
  - NECK PAIN [None]
  - NIGHT SWEATS [None]
  - ORAL CANDIDIASIS [None]
  - PAIN [None]
  - PAIN IN EXTREMITY [None]
  - PAPILLOMA VIRAL INFECTION [None]
  - PARAESTHESIA [None]
  - PERIPHERAL COLDNESS [None]
  - PHARYNGOLARYNGEAL PAIN [None]
  - PLEURITIC PAIN [None]
  - PNEUMONIA [None]
  - PNEUMONITIS [None]
  - POSTNASAL DRIP [None]
  - PROTHROMBIN TIME PROLONGED [None]
  - PYREXIA [None]
  - RECTAL HAEMORRHAGE [None]
  - SHOULDER PAIN [None]
  - SLEEP DISORDER [None]
  - SYNCOPE VASOVAGAL [None]
  - TACHYCARDIA [None]
  - THROMBOCYTHAEMIA [None]
  - TINNITUS [None]
  - UPPER RESPIRATORY TRACT INFECTION [None]
  - VOMITING [None]
  - VULVOVAGINAL MYCOTIC INFECTION [None]
  - WEIGHT DECREASED [None]
  - WHITE BLOOD CELL COUNT INCREASED [None]
